FAERS Safety Report 4882560-X (Version None)
Quarter: 2006Q1

REPORT INFORMATION
  Report Type: 
  Country: None (occurrence: None)
  Receive Date: 20060117
  Receipt Date: 20050922
  Transmission Date: 20060701
  Serious: Yes (Hospitalization)
  Sender: FDA-Public Use
  Company Number: US-MERCK-0509USA03466

PATIENT
  Age: 67 Year
  Sex: Female
  Weight: 58 kg

DRUGS (4)
  1. VIOXX [Suspect]
     Indication: ARTHRALGIA
     Route: 048
     Dates: start: 20000901, end: 20040101
  2. VIOXX [Suspect]
     Indication: OSTEOARTHRITIS
     Route: 048
     Dates: start: 20000901, end: 20040101
  3. TYLENOL (CAPLET) [Concomitant]
     Indication: PAIN
     Route: 065
  4. IBUPROFEN [Concomitant]
     Indication: PAIN
     Route: 065

REACTIONS (6)
  - ANAEMIA POSTOPERATIVE [None]
  - CORONARY ARTERY DISEASE [None]
  - HYPERLIPIDAEMIA [None]
  - HYPERTENSION [None]
  - MYOCARDIAL INFARCTION [None]
  - TACHYCARDIA [None]
